FAERS Safety Report 5177280-0 (Version None)
Quarter: 2006Q4

REPORT INFORMATION
  Report Type: 
  Country: None (occurrence: None)
  Receive Date: 20061218
  Receipt Date: 20060719
  Transmission Date: 20070319
  Serious: No
  Sender: FDA-Public Use
  Company Number: US-AMGEN-KDL187235

PATIENT
  Sex: Male

DRUGS (2)
  1. ENBREL [Suspect]
     Indication: JUVENILE ARTHRITIS
     Dates: start: 20060421
  2. METHOTREXATE [Concomitant]
     Dates: start: 20060421

REACTIONS (3)
  - ERYTHEMA [None]
  - FEELING HOT [None]
  - MICTURITION DISORDER [None]
